FAERS Safety Report 9179072 (Version 1)
Quarter: 2013Q1

REPORT INFORMATION
  Report Type: Report from Study
  Country: US (occurrence: US)
  Receive Date: 20130321
  Receipt Date: 20130321
  Transmission Date: 20140127
  Serious: Yes (Hospitalization, Other)
  Sender: FDA-Public Use
  Company Number: US-ABBOTT-13P-163-1063163-00

PATIENT
  Age: 49 None
  Sex: Female
  Weight: 61.74 kg

DRUGS (1)
  1. HUMIRA [Suspect]
     Indication: PSORIASIS

REACTIONS (6)
  - Jaundice [Unknown]
  - Abdominal pain [Unknown]
  - Drug effect decreased [Not Recovered/Not Resolved]
  - Psoriatic arthropathy [Not Recovered/Not Resolved]
  - Gastrooesophageal reflux disease [Unknown]
  - Cholelithiasis [Unknown]
